FAERS Safety Report 4779153-1 (Version None)
Quarter: 2005Q3

REPORT INFORMATION
  Report Type: 
  Country: None (occurrence: None)
  Receive Date: 20050923
  Receipt Date: 20050909
  Transmission Date: 20060218
  Serious: Yes (Other)
  Sender: FDA-Public Use
  Company Number: MC200500825

PATIENT
  Age: 62 Year
  Sex: Male

DRUGS (1)
  1. ANGIOMAX [Suspect]
     Dosage: 250 MG VIALS

REACTIONS (4)
  - ACUTE RESPIRATORY DISTRESS SYNDROME [None]
  - ALCOHOL WITHDRAWAL SYNDROME [None]
  - DELIRIUM TREMENS [None]
  - RESPIRATORY FAILURE [None]
